FAERS Safety Report 8830427 (Version 1)
Quarter: 2012Q4

REPORT INFORMATION
  Report Type: 
  Country: CA (occurrence: CA)
  Receive Date: 20121009
  Receipt Date: 20121009
  Transmission Date: 20130627
  Serious: Yes (Hospitalization)
  Sender: FDA-Public Use
  Company Number: CA-B.I. PHARMACEUTICALS,INC./RIDGEFIELD-2012-CN-02044CN

PATIENT
  Age: 85 Year
  Sex: Male

DRUGS (2)
  1. PRADAX [Suspect]
     Indication: CEREBROVASCULAR ACCIDENT PROPHYLAXIS
     Dosage: 220 mg
     Dates: start: 20120511
  2. PRADAX [Suspect]
     Indication: ATRIAL FIBRILLATION

REACTIONS (2)
  - Ischaemic stroke [Not Recovered/Not Resolved]
  - Hemiplegia [Not Recovered/Not Resolved]
